FAERS Safety Report 9293200 (Version 3)
Quarter: 2013Q2

REPORT INFORMATION
  Report Type: Spontaneous
  Country: US (occurrence: US)
  Receive Date: 20130516
  Receipt Date: 20130523
  Transmission Date: 20140414
  Serious: Yes (Hospitalization, Other)
  Sender: FDA-Public Use
  Company Number: US-ELI_LILLY_AND_COMPANY-US201305003258

PATIENT
  Age: 82 Year
  Sex: Male

DRUGS (5)
  1. FORTEO [Suspect]
     Indication: OSTEOPOROSIS
     Dosage: UNK, QD
     Dates: start: 20121127
  2. FORTEO [Suspect]
     Dosage: UNK, QD
  3. CALCIUM CITRATE [Concomitant]
     Dosage: 1200 MG, UNK
  4. VITAMIN D [Concomitant]
     Dosage: 2000 IU, UNK
  5. GLUCOSAMINE SULFATE [Concomitant]
     Dosage: UNK

REACTIONS (7)
  - Loss of consciousness [Unknown]
  - Blood sodium decreased [Unknown]
  - Confusional state [Unknown]
  - Electrolyte imbalance [Unknown]
  - Lumbar vertebral fracture [Unknown]
  - Amnesia [Unknown]
  - Feeling abnormal [Unknown]
